FAERS Safety Report 12013427 (Version 4)
Quarter: 2016Q1

REPORT INFORMATION
  Report Type: Report from Study
  Country: US (occurrence: US)
  Receive Date: 20160205
  Receipt Date: 20160323
  Transmission Date: 20160526
  Serious: Yes (Other)
  Sender: FDA-Public Use
  Company Number: US-GILEAD-2016-0196593

PATIENT
  Age: 64 Year
  Sex: Male

DRUGS (2)
  1. ADEMPAS [Concomitant]
     Active Substance: RIOCIGUAT
  2. AMBRISENTAN [Suspect]
     Active Substance: AMBRISENTAN
     Indication: PRODUCT USED FOR UNKNOWN INDICATION
     Dosage: 10 MG, QD
     Route: 065
     Dates: start: 20151223

REACTIONS (10)
  - Pulmonary mass [Unknown]
  - Decreased appetite [Unknown]
  - Brain neoplasm [Unknown]
  - Dyspnoea [Unknown]
  - Nausea [Unknown]
  - Lung neoplasm malignant [Unknown]
  - Increased appetite [Unknown]
  - Fatigue [Unknown]
  - Oxygen saturation abnormal [Unknown]
  - Hypotension [Unknown]
